FAERS Safety Report 8941844 (Version 1)
Quarter: 2012Q4

REPORT INFORMATION
  Report Type: 
  Country: CH (occurrence: CH)
  Receive Date: 20121203
  Receipt Date: 20121203
  Transmission Date: 20130627
  Serious: Yes (Hospitalization)
  Sender: FDA-Public Use
  Company Number: PHHY2012CH110273

PATIENT
  Age: 29 Year
  Sex: Female

DRUGS (5)
  1. DOXORUBICIN [Suspect]
     Indication: NON-HODGKIN^S LYMPHOMA
     Dosage: UNK UKN, UNK
     Route: 041
     Dates: start: 20120911
  2. METHOTREXATE [Suspect]
     Indication: NON-HODGKIN^S LYMPHOMA
     Dosage: UNK UKN, UNK
     Route: 037
     Dates: start: 20120911
  3. ENDOXAN [Suspect]
     Indication: NON-HODGKIN^S LYMPHOMA
     Dosage: UNK UKN, UNK
     Route: 041
     Dates: start: 20120911
  4. PREDNISON [Suspect]
     Indication: NON-HODGKIN^S LYMPHOMA
     Dosage: UNK UKN, UNK
     Route: 048
     Dates: start: 20120911
  5. VINCRISTINE TEVA [Concomitant]
     Indication: NON-HODGKIN^S LYMPHOMA
     Dosage: UNK UKN, UNK
     Route: 041
     Dates: start: 20120911

REACTIONS (3)
  - Cerebral thrombosis [Recovered/Resolved]
  - Headache [Recovered/Resolved]
  - Grand mal convulsion [Recovered/Resolved]
